FAERS Safety Report 5147886-3 (Version None)
Quarter: 2006Q4

REPORT INFORMATION
  Report Type: 
  Country: None (occurrence: None)
  Receive Date: 20061106
  Receipt Date: 20061023
  Transmission Date: 20070319
  Serious: Yes (Hospitalization)
  Sender: FDA-Public Use
  Company Number: CLOF-10331

PATIENT
  Age: 5 Year
  Sex: Male
  Weight: 19.2 kg

DRUGS (6)
  1. CLOFARABINE [Suspect]
     Indication: ACUTE MYELOID LEUKAEMIA
     Dosage: 15 MG QD X 5 IV
     Route: 042
     Dates: start: 20060908, end: 20060912
  2. ETOPOSIDE [Suspect]
     Indication: ACUTE MYELOID LEUKAEMIA
     Dosage: 76 MG QD X 5 IV
     Route: 042
     Dates: start: 20060908, end: 20060912
  3. CYCLOPHOSPHAMIDE [Suspect]
     Indication: ACUTE MYELOID LEUKAEMIA
     Dosage: 335 MG QD X 5 IV
     Route: 042
     Dates: start: 20060908, end: 20060912
  4. NEUPOGEN [Concomitant]
  5. BENADRYL [Concomitant]
  6. TYLENOL [Concomitant]

REACTIONS (13)
  - CELLULITIS [None]
  - DISEASE RECURRENCE [None]
  - EAR PAIN [None]
  - ERYTHEMA [None]
  - FACIAL PALSY [None]
  - NEUTROPENIA [None]
  - OCCULT BLOOD [None]
  - PAIN [None]
  - PYREXIA [None]
  - RECTAL FISSURE [None]
  - SKIN DISORDER [None]
  - TENDERNESS [None]
  - VOMITING [None]
